FAERS Safety Report 6646727-2 (Version None)
Quarter: 2010Q1

REPORT INFORMATION
  Report Type: 
  Country: None (occurrence: None)
  Receive Date: 20100317
  Receipt Date: 20100302
  Transmission Date: 20100710
  Serious: Yes (Hospitalization)
  Sender: FDA-Public Use
  Company Number: 2010000748

PATIENT
  Sex: Female
  Weight: 91 kg

DRUGS (4)
  1. ERLONTINIB (ERLOTINIB) (TABLET) (ERLOTINIB) [Suspect]
     Indication: PANCREATIC CARCINOMA METASTATIC
     Dosage: 100 MG, QD, ORAL
     Route: 048
     Dates: start: 20100121, end: 20100219
  2. GEMCITABINE [Suspect]
     Indication: PANCREATIC CARCINOMA METASTATIC
     Dosage: 1000 MG/M2, DAYS 1, 8, 15, INTRAVENOUS
     Route: 042
     Dates: start: 20100121, end: 20100205
  3. IMC-A12 (INJECTION FOR INFUSION) [Suspect]
     Dosage: 6 MG/KG, DAYS 1, 8, 15 AND 22, SUBCUTANEOUS
     Route: 058
     Dates: start: 20100124, end: 20100212
  4. COUMADIN [Concomitant]

REACTIONS (9)
  - ASTHENIA [None]
  - BLOOD ALBUMIN DECREASED [None]
  - DYSPNOEA [None]
  - GASTROINTESTINAL HAEMORRHAGE [None]
  - HAEMOGLOBIN DECREASED [None]
  - INTERNATIONAL NORMALISED RATIO INCREASED [None]
  - MITRAL VALVE INCOMPETENCE [None]
  - PROTHROMBIN TIME PROLONGED [None]
  - PULMONARY CONGESTION [None]
